FAERS Safety Report 17582633 (Version 1)
Quarter: 2020Q1

REPORT INFORMATION
  Report Type: Spontaneous
  Country: US (occurrence: US)
  Receive Date: 20200325
  Receipt Date: 20200325
  Transmission Date: 20200409
  Serious: No
  Sender: FDA-Public Use
  Company Number: US-ASTRAZENECA-2019SE76713

PATIENT
  Age: 21665 Day
  Sex: Female
  Weight: 86.6 kg

DRUGS (1)
  1. BYDUREON [Suspect]
     Active Substance: EXENATIDE
     Indication: TYPE 2 DIABETES MELLITUS
     Route: 058
     Dates: start: 20190520

REACTIONS (2)
  - Injection site extravasation [Unknown]
  - Injection site haemorrhage [Recovered/Resolved]

NARRATIVE: CASE EVENT DATE: 20190520
